FAERS Safety Report 7959338-3 (Version None)
Quarter: 2011Q4

REPORT INFORMATION
  Report Type: 
  Country: None (occurrence: None)
  Receive Date: 20111206
  Receipt Date: 20111205
  Transmission Date: 20120403
  Serious: Yes (Life-Threatening, Hospitalization, Other)
  Sender: FDA-Public Use
  Company Number: JP-PFIZER INC-2011233004

PATIENT
  Age: 79 Year
  Sex: Male
  Weight: 71.4 kg

DRUGS (5)
  1. LYRICA [Suspect]
     Indication: NEURALGIA
     Dosage: 150 MG/DAY
     Route: 048
     Dates: start: 20110811, end: 20110814
  2. LYRICA [Suspect]
     Dosage: 225 MG/DAY
     Route: 048
     Dates: start: 20110815, end: 20110821
  3. ZOLPIDEM [Concomitant]
     Dosage: UNK
  4. DEXAMETHASONE SODIUM PHOSPHATE [Concomitant]
     Indication: PAIN
     Dosage: 13.2 MG, 1X/DAY
     Route: 041
     Dates: start: 20110811, end: 20110817
  5. DEPAS [Concomitant]
     Dosage: UNK

REACTIONS (2)
  - PLEURAL EFFUSION [None]
  - GENERALISED OEDEMA [None]
